FAERS Safety Report 16999872 (Version 1)
Quarter: 2019Q4

REPORT INFORMATION
  Report Type: Report from Study
  Country: US (occurrence: US)
  Receive Date: 20191106
  Receipt Date: 20191106
  Transmission Date: 20200122
  Serious: Yes (Other)
  Sender: FDA-Public Use
  Company Number: US-GILEAD-2019-0435918

PATIENT
  Age: 57 Year
  Sex: Female

DRUGS (1)
  1. SOFOSBUVIR W/VELPATASVIR [Suspect]
     Active Substance: SOFOSBUVIR\VELPATASVIR
     Indication: HEPATITIS C
     Dosage: UNK, QD
     Route: 048
     Dates: start: 2016, end: 2016

REACTIONS (10)
  - Oesophageal dilation procedure [Unknown]
  - Nervous system disorder [Not Recovered/Not Resolved]
  - Hepatitis B [Unknown]
  - Fatigue [Not Recovered/Not Resolved]
  - Blood potassium decreased [Not Recovered/Not Resolved]
  - Dysarthria [Not Recovered/Not Resolved]
  - Gastroenteritis Escherichia coli [Unknown]
  - Dizziness [Not Recovered/Not Resolved]
  - Memory impairment [Not Recovered/Not Resolved]
  - Depression [Not Recovered/Not Resolved]

NARRATIVE: CASE EVENT DATE: 2016
